FAERS Safety Report 13666442 (Version 1)
Quarter: 2017Q2

REPORT INFORMATION
  Report Type: Spontaneous
  Country: US (occurrence: US)
  Receive Date: 20170619
  Receipt Date: 20170619
  Transmission Date: 20170830
  Serious: No
  Sender: FDA-Public Use
  Company Number: US-ROCHE-1321753

PATIENT
  Sex: Male

DRUGS (5)
  1. SIMVASTATIN. [Concomitant]
     Active Substance: SIMVASTATIN
  2. XELODA [Suspect]
     Active Substance: CAPECITABINE
     Indication: PRODUCT USED FOR UNKNOWN INDICATION
     Dosage: 3 TABS IN THE AM, 2 TABS IN THE PM, 14D ON 7D OF
     Route: 048
     Dates: start: 20130612
  3. LISINOPRIL. [Concomitant]
     Active Substance: LISINOPRIL
  4. XELODA [Suspect]
     Active Substance: CAPECITABINE
     Route: 048
     Dates: start: 20130215
  5. CLARITIN [Concomitant]
     Active Substance: LORATADINE

REACTIONS (2)
  - Paraesthesia [Unknown]
  - Pharyngitis [Unknown]
